FAERS Safety Report 10071966 (Version 1)
Quarter: 2014Q2

REPORT INFORMATION
  Report Type: Spontaneous
  Country: IT (occurrence: IT)
  Receive Date: 20140411
  Receipt Date: 20140411
  Transmission Date: 20141212
  Serious: Yes (Hospitalization)
  Sender: FDA-Public Use
  Company Number: IT-BRISTOL-MYERS SQUIBB COMPANY-20551503

PATIENT
  Age: 90 Year
  Sex: Male

DRUGS (6)
  1. COUMADIN TABS 5 MG [Suspect]
     Indication: ATRIAL FIBRILLATION
     Dosage: LAST DOSE ON 05-MAR-2014 AND SUSPENDED;RE-INTRODUCED WITH 11.25MG/WEEKLY
     Route: 048
     Dates: start: 20050301
  2. PERINDOPRIL [Concomitant]
     Dosage: TABS
     Route: 048
  3. BISOPROLOL HEMIFUMARATE [Concomitant]
     Dosage: TABS
     Route: 048
  4. PANTOPRAZOLE [Concomitant]
     Dosage: TABS
     Route: 048
  5. KANRENOL [Concomitant]
     Dosage: KANRENOL 25MG TABS
     Route: 048
  6. LASIX [Concomitant]
     Dosage: LASIX 500MG TABS
     Route: 048

REACTIONS (3)
  - Cardiac failure [Unknown]
  - Pleural effusion [Unknown]
  - International normalised ratio increased [Recovered/Resolved]
